FAERS Safety Report 18481166 (Version 2)
Quarter: 2021Q1

REPORT INFORMATION
  Report Type: Spontaneous
  Country: US (occurrence: US)
  Receive Date: 20201109
  Receipt Date: 20210223
  Transmission Date: 20210419
  Serious: No
  Sender: FDA-Public Use
  Company Number: US-PFIZER INC-2020431718

PATIENT
  Age: 36 Year
  Sex: Female

DRUGS (1)
  1. XELJANZ XR [Suspect]
     Active Substance: TOFACITINIB CITRATE
     Indication: RHEUMATOID ARTHRITIS
     Dosage: 11 MG, 1X/DAY
     Dates: start: 202007

REACTIONS (5)
  - Depression [Unknown]
  - Insomnia [Unknown]
  - Pain [Unknown]
  - Intentional product use issue [Unknown]
  - Anxiety [Unknown]
